FAERS Safety Report 18620352 (Version 1)
Quarter: 2020Q4

REPORT INFORMATION
  Report Type: Spontaneous
  Country: CA (occurrence: CA)
  Receive Date: 20201215
  Receipt Date: 20201215
  Transmission Date: 20210114
  Serious: Yes (Other)
  Sender: FDA-Public Use
  Company Number: CA-BAYER-2020-269981

PATIENT
  Sex: Female

DRUGS (7)
  1. ALEVE [Suspect]
     Active Substance: NAPROXEN SODIUM
  2. CODEINE [Suspect]
     Active Substance: CODEINE
  3. LYRICA [Suspect]
     Active Substance: PREGABALIN
     Indication: BACK PAIN
  4. DEMEROL [Suspect]
     Active Substance: MEPERIDINE HYDROCHLORIDE
     Indication: BACK PAIN
  5. METHOTREXATE. [Suspect]
     Active Substance: METHOTREXATE
  6. SIMPONI [Suspect]
     Active Substance: GOLIMUMAB
  7. HYDROXYCHLOROQUINE [Suspect]
     Active Substance: HYDROXYCHLOROQUINE

REACTIONS (4)
  - Drug intolerance [Unknown]
  - Anaphylactic reaction [Unknown]
  - Rheumatoid arthritis [Unknown]
  - Chest pain [Unknown]
